FAERS Safety Report 4348419-1 (Version None)
Quarter: 2004Q2

REPORT INFORMATION
  Report Type: 
  Country: None (occurrence: None)
  Receive Date: 20040422
  Receipt Date: 20040407
  Transmission Date: 20050107
  Serious: Yes (Congenital Anomaly)
  Sender: FDA-Public Use
  Company Number: TNZSE200400044

PATIENT
  Age: 0 Year
  Sex: Female

DRUGS (2)
  1. INNOHEP [Suspect]
     Indication: DEEP VEIN THROMBOSIS
     Dates: end: 20031001
  2. FRAGMIN [Suspect]
     Indication: DEEP VEIN THROMBOSIS
     Dates: end: 20031001

REACTIONS (5)
  - DEEP VEIN THROMBOSIS [None]
  - OVARIAN CYST [None]
  - PELVIC PAIN [None]
  - PREGNANCY [None]
  - VEIN DISORDER [None]
